FAERS Safety Report 4646803-X (Version None)
Quarter: 2005Q2

REPORT INFORMATION
  Report Type: 
  Country: None (occurrence: None)
  Receive Date: 20050331
  Receipt Date: 20041202
  Transmission Date: 20051028
  Serious: No
  Sender: FDA-Public Use
  Company Number: 04P-163-0282032-00

PATIENT
  Age: 61 Year
  Sex: Male

DRUGS (6)
  1. HUMIRA [Suspect]
     Indication: RHEUMATOID ARTHRITIS
     Dosage: 40 MG, 1 IN 2 WK, SUBCUTANEOUS
     Route: 058
     Dates: start: 20040701, end: 20041118
  2. COLCHICINE [Concomitant]
  3. BROBENATID [Concomitant]
  4. GABAPENTIN [Concomitant]
  5. FENOFIBRATE [Concomitant]
  6. ATORVASTATIN CALCIUM [Concomitant]

REACTIONS (4)
  - FACE OEDEMA [None]
  - IMPAIRED HEALING [None]
  - ORAL PAIN [None]
  - RASH PUSTULAR [None]
